FAERS Safety Report 25871138 (Version 2)
Quarter: 2025Q4

REPORT INFORMATION
  Report Type: Spontaneous
  Country: CR (occurrence: CR)
  Receive Date: 20251001
  Receipt Date: 20251202
  Transmission Date: 20260119
  Serious: Yes (Other)
  Sender: SANDOZ
  Company Number: CR-002147023-NVSC2025CR086722

PATIENT
  Age: 56 Year
  Sex: Female

DRUGS (3)
  1. FULVESTRANT [Suspect]
     Active Substance: FULVESTRANT
     Indication: Breast cancer metastatic
     Dosage: 2 DOSAGE FORM, QMO (2 INJECTIONS); START DATE: ??-AUG-2024
     Route: 058
     Dates: start: 202408
  2. KISQALI [Suspect]
     Active Substance: RIBOCICLIB SUCCINATE
     Indication: Breast cancer metastatic
     Dosage: 600 MG, QD; START DATE: 12-AUG-2024
     Route: 048
  3. ZOMETA [Suspect]
     Active Substance: ZOLEDRONIC ACID
     Indication: Spinal disorder
     Dosage: UNK; START DATE: ??-JUL-2024
     Route: 065
     Dates: start: 202407

REACTIONS (31)
  - Tracheal stenosis [Unknown]
  - Dry skin [Not Recovered/Not Resolved]
  - Skin discolouration [Unknown]
  - Memory impairment [Unknown]
  - Oropharyngeal discomfort [Not Recovered/Not Resolved]
  - Productive cough [Unknown]
  - Skin lesion [Not Recovered/Not Resolved]
  - Acne [Unknown]
  - Chest discomfort [Unknown]
  - Skin disorder [Not Recovered/Not Resolved]
  - Feeling hot [Not Recovered/Not Resolved]
  - Tachycardia [Not Recovered/Not Resolved]
  - Discomfort [Unknown]
  - Throat tightness [Unknown]
  - Helicobacter gastritis [Recovering/Resolving]
  - Alopecia [Not Recovered/Not Resolved]
  - Dyspnoea [Not Recovered/Not Resolved]
  - Chest pain [Not Recovered/Not Resolved]
  - Hypersensitivity [Not Recovered/Not Resolved]
  - Erythema [Not Recovered/Not Resolved]
  - Pain [Not Recovered/Not Resolved]
  - Headache [Recovering/Resolving]
  - Pain in extremity [Not Recovered/Not Resolved]
  - Arthralgia [Not Recovered/Not Resolved]
  - Fatigue [Not Recovered/Not Resolved]
  - Abdominal pain upper [Not Recovered/Not Resolved]
  - Nausea [Not Recovered/Not Resolved]
  - Malaise [Unknown]
  - Weight decreased [Recovering/Resolving]
  - Decreased appetite [Recovering/Resolving]
  - Off label use [Unknown]

NARRATIVE: CASE EVENT DATE: 20240701
